FAERS Safety Report 24067471 (Version 2)
Quarter: 2024Q3

REPORT INFORMATION
  Report Type: Report from Study
  Country: GB (occurrence: GB)
  Receive Date: 20240709
  Receipt Date: 20240911
  Transmission Date: 20241017
  Serious: Yes (Hospitalization)
  Sender: ABBVIE
  Company Number: GB-ABBVIE-5832045

PATIENT
  Age: 47 Year
  Sex: Female

DRUGS (1)
  1. SKYRIZI [Suspect]
     Active Substance: RISANKIZUMAB-RZAA
     Indication: Psoriasis
     Dosage: FORM STRENGTH: 150 MILLIGRAM
     Route: 058

REACTIONS (10)
  - Gait inability [Unknown]
  - Vomiting [Unknown]
  - Troponin increased [Recovered/Resolved]
  - Rash [Unknown]
  - Peripheral swelling [Unknown]
  - Chest pain [Unknown]
  - Inflammation [Unknown]
  - Lymphoedema [Unknown]
  - Pain in extremity [Unknown]
  - Fibromyalgia [Unknown]

NARRATIVE: CASE EVENT DATE: 20240801
